FAERS Safety Report 8549794-4 (Version None)
Quarter: 2012Q3

REPORT INFORMATION
  Report Type: 
  Country: None (occurrence: None)
  Receive Date: 20120730
  Receipt Date: 20120723
  Transmission Date: 20120928
  Serious: No
  Sender: FDA-Public Use
  Company Number: US-009507513-1207USA009734

PATIENT

DRUGS (1)
  1. ZOCOR [Suspect]
     Dosage: 40 MG, HS
     Route: 048

REACTIONS (5)
  - RENAL DISORDER [None]
  - URTICARIA [None]
  - RASH [None]
  - BLOOD CREATINE INCREASED [None]
  - BLOOD UREA INCREASED [None]
